FAERS Safety Report 8022585 (Version 4)
Quarter: 2014Q3

REPORT INFORMATION
  Report Type: Spontaneous
  Country: HK (occurrence: HK)
  Receive Date: 20110706
  Receipt Date: 20140729
  Transmission Date: 20150326
  Serious: Yes (Hospitalization, Other)
  Sender: FDA-Public Use
  Company Number: HK-RANBAXY-2011RR-45733

PATIENT
  Sex: Female

DRUGS (3)
  1. NICERGOLINE [Concomitant]
     Active Substance: NICERGOLINE
     Indication: DEMENTIA
     Dosage: 15 MG, BID
     Route: 065
  2. SIMVASTATIN. [Suspect]
     Active Substance: SIMVASTATIN
     Indication: TYPE IIA HYPERLIPIDAEMIA
     Dosage: 40 MG/DAY
     Route: 065
  3. DILTIAZEM [Interacting]
     Active Substance: DILTIAZEM
     Indication: HYPERTENSION
     Dosage: 60 MG, BID
     Route: 065

REACTIONS (4)
  - Muscular weakness [Recovering/Resolving]
  - Drug interaction [Recovering/Resolving]
  - Renal impairment [Recovering/Resolving]
  - Myopathy [Recovering/Resolving]
